FAERS Safety Report 12429112 (Version 1)
Quarter: 2016Q2

REPORT INFORMATION
  Report Type: Report from Study
  Country: CO (occurrence: CO)
  Receive Date: 20160602
  Receipt Date: 20160602
  Transmission Date: 20160815
  Serious: Yes (Other)
  Sender: FDA-Public Use
  Company Number: CO-JNJFOC-20160528931

PATIENT
  Age: 34 Year
  Sex: Female
  Weight: 54 kg

DRUGS (2)
  1. SIMPONI [Suspect]
     Active Substance: GOLIMUMAB
     Indication: SPONDYLOARTHROPATHY
     Route: 058
     Dates: start: 20150228
  2. SIMPONI [Suspect]
     Active Substance: GOLIMUMAB
     Indication: SPONDYLOARTHROPATHY
     Route: 058
     Dates: start: 20160525

REACTIONS (6)
  - Haematoma [Not Recovered/Not Resolved]
  - Visual acuity reduced [Unknown]
  - Blindness unilateral [Unknown]
  - Product use issue [Unknown]
  - Off label use [Unknown]
  - Uveitis [Not Recovered/Not Resolved]

NARRATIVE: CASE EVENT DATE: 20160520
